FAERS Safety Report 10194939 (Version 2)
Quarter: 2014Q2

REPORT INFORMATION
  Report Type: Spontaneous
  Country: JP (occurrence: JP)
  Receive Date: 20140526
  Receipt Date: 20140605
  Transmission Date: 20141212
  Serious: Yes (Other)
  Sender: FDA-Public Use
  Company Number: JP-PFIZER INC-2014142714

PATIENT
  Sex: 0

DRUGS (1)
  1. ANCARON [Suspect]
     Dosage: UNK
     Route: 048

REACTIONS (2)
  - Pneumonia bacterial [Unknown]
  - Disease progression [Unknown]
